FAERS Safety Report 9961838 (Version 2)
Quarter: 2014Q1

REPORT INFORMATION
  Report Type: Spontaneous
  Country: PR (occurrence: PR)
  Receive Date: 20140305
  Receipt Date: 20140305
  Transmission Date: 20141002
  Serious: No
  Sender: FDA-Public Use
  Company Number: PR-ABBVIE-12P-131-1019746-00

PATIENT
  Sex: Female
  Weight: 78.09 kg

DRUGS (12)
  1. HUMIRA [Suspect]
     Indication: PRODUCT USED FOR UNKNOWN INDICATION
     Route: 058
  2. PREDNISONE [Concomitant]
     Indication: RHEUMATOID ARTHRITIS
     Route: 048
  3. SYNTHROID [Concomitant]
     Indication: THYROID DISORDER
  4. LOSARTAN [Concomitant]
     Indication: HYPERTENSION
     Route: 048
  5. NORVAC [Concomitant]
     Indication: HYPERTENSION
     Route: 048
  6. PRILOSEC [Concomitant]
     Indication: GASTRITIS
     Route: 048
  7. SYMPHONY [Concomitant]
     Indication: PRODUCT USED FOR UNKNOWN INDICATION
     Route: 058
  8. TRAMADOL [Concomitant]
     Indication: PAIN
  9. CLONOPIN [Concomitant]
     Indication: PRODUCT USED FOR UNKNOWN INDICATION
     Route: 048
  10. CLONOPIN [Concomitant]
     Route: 048
  11. CELEBREX [Concomitant]
     Indication: PRODUCT USED FOR UNKNOWN INDICATION
     Route: 048
  12. ZANTAC [Concomitant]
     Indication: GASTRITIS
     Route: 048

REACTIONS (1)
  - Drug ineffective [Recovered/Resolved]
